FAERS Safety Report 9642555 (Version 2)
Quarter: 2013Q4

REPORT INFORMATION
  Report Type: Spontaneous
  Country: IT (occurrence: IT)
  Receive Date: 20131024
  Receipt Date: 20131101
  Transmission Date: 20140711
  Serious: Yes (Hospitalization, Other)
  Sender: FDA-Public Use
  Company Number: IT-RANBAXY-2013RR-74405

PATIENT
  Age: 6 Year
  Sex: Male

DRUGS (7)
  1. AMOXICILLIN/CLAVULANIC ACID [Suspect]
     Indication: RESPIRATORY TRACT INFECTION
     Dosage: UNK
     Route: 065
  2. VENTOLIN HFA [Suspect]
     Indication: DYSPNOEA
     Dosage: 100 ?G, 2 SPRAYS, TID
     Route: 055
  3. VENTOLIN HFA [Suspect]
     Indication: BRONCHITIS
     Dosage: 4 SPRAYS X 4
     Route: 055
  4. BOOSTRIX [Suspect]
     Indication: IMMUNISATION
  5. BETAMETHASONE [Concomitant]
     Indication: RESPIRATORY TRACT INFECTION
     Dosage: 0.5 MG, UNK
     Route: 048
  6. FLUTICASONE [Concomitant]
     Indication: RESPIRATORY TRACT INFECTION
     Dosage: 50 ?G, UNK
     Route: 055
  7. TOBRAMYCIN [Concomitant]
     Indication: BRONCHITIS
     Dosage: UNK
     Route: 047

REACTIONS (1)
  - Stevens-Johnson syndrome [Unknown]
